FAERS Safety Report 6549210-8 (Version None)
Quarter: 2010Q1

REPORT INFORMATION
  Report Type: 
  Country: None (occurrence: None)
  Receive Date: 20100125
  Receipt Date: 20100114
  Transmission Date: 20100710
  Serious: Yes (Other)
  Sender: FDA-Public Use
  Company Number: US-BAXTER-2010BH000951

PATIENT
  Age: 57 Year
  Sex: Female

DRUGS (7)
  1. ARALAST NP [Suspect]
     Indication: ALPHA-1 ANTI-TRYPSIN DEFICIENCY
     Route: 042
     Dates: start: 20081101
  2. DIFLUCAN [Concomitant]
     Route: 048
  3. PREDNISONE [Concomitant]
     Route: 048
  4. CLONAZEPAM [Concomitant]
     Route: 048
  5. MULTI-VITAMIN [Concomitant]
     Route: 048
  6. BUMEX [Concomitant]
     Route: 048
  7. PROVENTIL [Concomitant]
     Route: 055

REACTIONS (1)
  - ERYTHEMA INFECTIOSUM [None]
